FAERS Safety Report 22659761 (Version 1)
Quarter: 2023Q2

REPORT INFORMATION
  Report Type: Spontaneous
  Country: US (occurrence: None)
  Receive Date: 20230630
  Receipt Date: 20230630
  Transmission Date: 20230721
  Serious: Yes (Hospitalization)
  Sender: FDA-Public Use
  Company Number: None

PATIENT
  Sex: Male

DRUGS (1)
  1. TACROLIMUS [Suspect]
     Active Substance: TACROLIMUS
     Indication: Liver transplant
     Dosage: TAKE 2 CAPSULES [2 MG) BY MOUTH EVERY MORNING AND 1 CAPSULE [1MG) EVERY EVENING
     Route: 048
     Dates: start: 202105

REACTIONS (1)
  - Dyspnoea [None]
